FAERS Safety Report 15244230 (Version 1)
Quarter: 2018Q3

REPORT INFORMATION
  Report Type: Spontaneous
  Country: US (occurrence: US)
  Receive Date: 20180806
  Receipt Date: 20180806
  Transmission Date: 20181010
  Serious: Yes (Hospitalization, Other)
  Sender: FDA-Public Use
  Company Number: US-009507513-1808USA001861

PATIENT
  Age: 80 Year
  Sex: Female

DRUGS (1)
  1. PEMBROLIZUMAB. [Suspect]
     Active Substance: PEMBROLIZUMAB
     Indication: MALIGNANT MELANOMA
     Dosage: 107 MG, EVERY THREE WEEKS
     Route: 042

REACTIONS (2)
  - Autoimmune endocrine disorder [Recovering/Resolving]
  - Type 1 diabetes mellitus [Recovering/Resolving]
